FAERS Safety Report 14514626 (Version 4)
Quarter: 2018Q2

REPORT INFORMATION
  Report Type: Spontaneous
  Country: US (occurrence: US)
  Receive Date: 20180209
  Receipt Date: 20180511
  Transmission Date: 20180711
  Serious: Yes (Hospitalization, Other)
  Sender: FDA-Public Use
  Company Number: US-ACTELION-A-US2017-164185

PATIENT
  Age: 42 Year
  Sex: Male

DRUGS (10)
  1. ENULOSE [Concomitant]
     Active Substance: LACTULOSE
  2. DEXILANT [Concomitant]
     Active Substance: DEXLANSOPRAZOLE
  3. RIFAXIMIN. [Concomitant]
     Active Substance: RIFAXIMIN
  4. SPIRONOLACTONE. [Concomitant]
     Active Substance: SPIRONOLACTONE
  5. VELETRI [Suspect]
     Active Substance: EPOPROSTENOL
     Indication: PULMONARY HYPERTENSION
     Dosage: 10 NG/KG, PER MIN
     Route: 042
     Dates: start: 20171118
  6. FERROUS SULFATE. [Concomitant]
     Active Substance: FERROUS SULFATE
  7. FOLIC ACID. [Concomitant]
     Active Substance: FOLIC ACID
  8. LEVOTHYROXINE. [Concomitant]
     Active Substance: LEVOTHYROXINE
  9. LASIX [Concomitant]
     Active Substance: FUROSEMIDE
  10. METOPROLOL SUCCINATE. [Concomitant]
     Active Substance: METOPROLOL SUCCINATE

REACTIONS (14)
  - Pain [Unknown]
  - Vomiting [Unknown]
  - Pain in jaw [Not Recovered/Not Resolved]
  - Diarrhoea [Unknown]
  - Dyspnoea exertional [Unknown]
  - Retching [Unknown]
  - Hepatic cancer [Unknown]
  - Liver disorder [Unknown]
  - Weight decreased [Unknown]
  - Encephalopathy [Unknown]
  - Headache [Unknown]
  - Decreased appetite [Unknown]
  - Nausea [Unknown]
  - Fatigue [Unknown]

NARRATIVE: CASE EVENT DATE: 20171206
